FAERS Safety Report 5806396-8 (Version None)
Quarter: 2008Q3

REPORT INFORMATION
  Report Type: 
  Country: None (occurrence: None)
  Receive Date: 20080710
  Receipt Date: 20080630
  Transmission Date: 20090109
  Serious: Yes (Hospitalization)
  Sender: FDA-Public Use
  Company Number: FR-SANOFI-SYNTHELABO-A02200802023

PATIENT

DRUGS (2)
  1. FLUOROURACIL [Concomitant]
     Route: 041
  2. ELOXATIN [Suspect]
     Indication: NEOPLASM MALIGNANT
     Route: 041
     Dates: start: 20070611, end: 20070611

REACTIONS (3)
  - CELL DEATH [None]
  - CHILLS [None]
  - HYPERTHERMIA [None]
